FAERS Safety Report 9022553 (Version 1)
Quarter: 2013Q1

REPORT INFORMATION
  Report Type: Spontaneous
  Country: US (occurrence: US)
  Receive Date: 20130118
  Receipt Date: 20130118
  Transmission Date: 20140127
  Serious: No
  Sender: FDA-Public Use
  Company Number: US-GLAXOSMITHKLINE-A0974804A

PATIENT
  Age: 68 Year
  Sex: Male

DRUGS (5)
  1. PROMACTA [Suspect]
     Indication: IDIOPATHIC THROMBOCYTOPENIC PURPURA
     Dosage: 50MG PER DAY
     Route: 048
     Dates: start: 20120209
  2. ZYRTEC-D [Concomitant]
  3. HYTRIN [Concomitant]
  4. PRILOSEC [Concomitant]
  5. ZOCOR [Concomitant]

REACTIONS (2)
  - Local swelling [Unknown]
  - Local swelling [Unknown]
